FAERS Safety Report 22021614 (Version 1)
Quarter: 2023Q1

REPORT INFORMATION
  Report Type: Spontaneous
  Country: US (occurrence: None)
  Receive Date: 20230218
  Receipt Date: 20230218
  Transmission Date: 20230418
  Serious: No
  Sender: FDA-Public Use
  Company Number: None

PATIENT
  Age: 78 Year
  Weight: 56.25 kg

DRUGS (1)
  1. ARTIFICIAL TEARS (CARBOXYMETHYLCELLULOSE SODIUM) [Suspect]
     Active Substance: CARBOXYMETHYLCELLULOSE SODIUM
     Indication: Blepharitis
     Dosage: OTHER QUANTITY : 2 DROPS;?FREQUENCY : EVERY 8 HOURS;?
     Route: 047
     Dates: start: 20221105, end: 20221128

REACTIONS (1)
  - Eyelid infection [None]

NARRATIVE: CASE EVENT DATE: 20221128
